FAERS Safety Report 24850052 (Version 1)
Quarter: 2025Q1

REPORT INFORMATION
  Report Type: Spontaneous
  Country: CN (occurrence: CN)
  Receive Date: 20250116
  Receipt Date: 20250116
  Transmission Date: 20250409
  Serious: Yes (Other)
  Sender: BAYER HEALTHCARE PHARMACEUTICALS INC.
  Company Number: CN-BAYER-2025A006720

PATIENT
  Age: 59 Year
  Sex: Male
  Weight: 57.5 kg

DRUGS (4)
  1. STIVARGA [Suspect]
     Active Substance: REGORAFENIB MONOHYDRATE
     Indication: Chemotherapy
     Dosage: 160 MG, QD
     Route: 048
     Dates: start: 20241219, end: 20241227
  2. TISLELIZUMAB [Suspect]
     Active Substance: TISLELIZUMAB
     Indication: Immunochemotherapy
     Dosage: 200 MG, QD, 0.9% SODIUM CHLORIDE 100ML
     Route: 041
     Dates: start: 20241219, end: 20241219
  3. GRANULOCYTE COLONY-STIMULATING FACTOR NOS [Concomitant]
     Active Substance: GRANULOCYTE COLONY-STIMULATING FACTOR NOS
     Indication: White blood cell count decreased
     Route: 058
     Dates: start: 20241219
  4. Di yu sheng bai [Concomitant]
     Indication: White blood cell count decreased
     Dosage: 0.2 G, TID
     Route: 048
     Dates: start: 20241219

REACTIONS (1)
  - Myelosuppression [Unknown]

NARRATIVE: CASE EVENT DATE: 20250109
